FAERS Safety Report 5565286-9 (Version None)
Quarter: 2007Q4

REPORT INFORMATION
  Report Type: 
  Country: None (occurrence: None)
  Receive Date: 20071218
  Receipt Date: 20020227
  Transmission Date: 20080405
  Serious: Yes (Death, Hospitalization)
  Sender: FDA-Public Use
  Company Number: US-ROCHE-308133

PATIENT
  Age: 66 Year
  Sex: Male
  Weight: 77.6 kg

DRUGS (1)
  1. XELODA [Suspect]
     Indication: MESOTHELIOMA
     Dosage: IT WAS REPORTED THAT THE PATIENT WAS ON A CLINICAL TRIAL AT OSU.
     Route: 048

REACTIONS (2)
  - MESOTHELIOMA [None]
  - OESOPHAGEAL ULCER [None]
